FAERS Safety Report 9471780 (Version 1)
Quarter: 2013Q3

REPORT INFORMATION
  Report Type: Spontaneous
  Country: GB (occurrence: GB)
  Receive Date: 20130822
  Receipt Date: 20130822
  Transmission Date: 20140515
  Serious: Yes (Other)
  Sender: FDA-Public Use
  Company Number: GB-GLAXOSMITHKLINE-B0916412A

PATIENT
  Age: 70 Year
  Sex: Female
  Weight: 62 kg

DRUGS (4)
  1. ACICLOVIR [Suspect]
     Dates: start: 20130517
  2. INDAPAMIDE [Concomitant]
     Dates: start: 20130130
  3. SIMVASTATIN [Concomitant]
     Dates: start: 20130130
  4. CETIRIZINE [Concomitant]
     Dates: start: 20130517

REACTIONS (2)
  - Swollen tongue [Unknown]
  - Glossodynia [Unknown]
